FAERS Safety Report 5931389-X (Version None)
Quarter: 2008Q4

REPORT INFORMATION
  Report Type: 
  Country: None (occurrence: None)
  Receive Date: 20081009
  Receipt Date: 20080630
  Transmission Date: 20090506
  Serious: Yes (Hospitalization, Disabling)
  Sender: FDA-Public Use
  Company Number: PHEH2008US05141

PATIENT
  Age: 59 Year
  Sex: Female

DRUGS (12)
  1. ZOMETA [Suspect]
     Indication: BREAST CANCER
     Dosage: 4 MG QMONTH FOR 6 MONTHS, INTRAVENOUS
     Route: 042
  2. FOSAMAX [Suspect]
     Indication: OSTEOPOROSIS
     Dosage: 70MG WEEKLY X 4 MONTHS, INTRAVENOUS
     Route: 042
  3. SIMVASTATIN [Concomitant]
  4. SYNTHROID [Concomitant]
  5. AROMASIN [Concomitant]
  6. POTASSIUM CHLORIDE [Concomitant]
  7. LASIX [Concomitant]
  8. MEGACE [Concomitant]
  9. LACTULOSE [Concomitant]
  10. LIPITOR [Concomitant]
  11. FENTANYL-100 [Concomitant]
  12. OXYCODONE HCL [Concomitant]

REACTIONS (1)
  - BONE DISORDER [None]
